FAERS Safety Report 6141300-7 (Version None)
Quarter: 2009Q1

REPORT INFORMATION
  Report Type: 
  Country: None (occurrence: None)
  Receive Date: 20090331
  Receipt Date: 20090331
  Transmission Date: 20090719
  Serious: Yes (Other)
  Sender: FDA-Public Use
  Company Number: None

PATIENT
  Age: 69 Year
  Sex: Female
  Weight: 79.3795 kg

DRUGS (2)
  1. TRILIPIX [Suspect]
     Indication: BLOOD TRIGLYCERIDES INCREASED
     Dosage: 1 CAPSULE DAILY PO
     Route: 048
     Dates: start: 20090226, end: 20090327
  2. TRILIPIX [Suspect]
     Indication: LOW DENSITY LIPOPROTEIN
     Dosage: 1 CAPSULE DAILY PO
     Route: 048
     Dates: start: 20090226, end: 20090327

REACTIONS (2)
  - MIGRAINE [None]
  - MYALGIA [None]
